FAERS Safety Report 6222091-8 (Version None)
Quarter: 2009Q2

REPORT INFORMATION
  Report Type: 
  Country: None (occurrence: None)
  Receive Date: 20090611
  Receipt Date: 20081127
  Transmission Date: 20091009
  Serious: Yes (Hospitalization)
  Sender: FDA-Public Use
  Company Number: BE-ASTRAZENECA-2004AC00855

PATIENT
  Age: 29087 Day
  Sex: Male

DRUGS (17)
  1. PLACEBO [Suspect]
     Indication: RENAL FAILURE CHRONIC
     Route: 048
     Dates: start: 20030623
  2. TENORMIN [Suspect]
     Indication: HYPERTENSION
     Dosage: HALF A TABLET GIVEN EVERY OTHER DAY
     Route: 048
     Dates: start: 20020206, end: 20040802
  3. ISOTEN MITIS [Suspect]
     Indication: HYPOTENSION
     Route: 048
     Dates: start: 20040816, end: 20041123
  4. FERRON [Concomitant]
     Indication: MINERAL SUPPLEMENTATION
     Route: 042
     Dates: start: 20030509
  5. POLYVITAMINES [Concomitant]
     Indication: PROPHYLAXIS
     Route: 042
     Dates: start: 20030226
  6. LASIX [Concomitant]
     Indication: OEDEMA
     Route: 048
     Dates: start: 20030616
  7. LASIX [Concomitant]
     Route: 048
     Dates: start: 20020408
  8. RENAGEL [Concomitant]
     Indication: DRUG THERAPY
     Route: 048
     Dates: start: 20040216
  9. ENFEUX [Concomitant]
     Indication: IMMUNISATION
     Route: 030
     Dates: start: 20031006
  10. ACETYLSALICYLIC ACID SRT [Concomitant]
     Indication: ARTERIOSCLEROSIS
     Route: 048
     Dates: start: 20020819
  11. CALCIUM CARBONATE [Concomitant]
     Indication: MINERAL SUPPLEMENTATION
     Route: 048
     Dates: start: 20020821
  12. FOLIC ACID [Concomitant]
     Indication: PROPHYLAXIS
     Route: 048
     Dates: start: 20020213
  13. EPOETIN [Concomitant]
     Indication: ANAEMIA
     Route: 042
     Dates: start: 20030505
  14. CITALOPRAM [Concomitant]
     Indication: DEPRESSION
     Route: 048
     Dates: start: 20020206
  15. RANITIDINE [Concomitant]
     Indication: PROPHYLAXIS AGAINST GASTROINTESTINAL ULCER
     Route: 048
     Dates: start: 20020206
  16. ALLOPURINOL [Concomitant]
     Indication: GOUT
     Route: 048
     Dates: start: 20020206
  17. SODIUM BICARBONATE [Concomitant]
     Indication: DRUG THERAPY
     Route: 048
     Dates: start: 20040628

REACTIONS (1)
  - MALAISE [None]
